FAERS Safety Report 8891310 (Version 1)
Quarter: 2012Q4

REPORT INFORMATION
  Report Type: 
  Country: DE (occurrence: DE)
  Receive Date: 20121107
  Receipt Date: 20121107
  Transmission Date: 20130627
  Serious: Yes (Other)
  Sender: FDA-Public Use
  Company Number: DE-ASTRAZENECA-2012SE83087

PATIENT
  Sex: Male
  Weight: 3 kg

DRUGS (10)
  1. SEROQUEL PROLONG [Suspect]
     Indication: BIPOLAR DISORDER
     Route: 064
     Dates: start: 20091111, end: 20100819
  2. FOLIO [Suspect]
     Indication: PROPHYLAXIS OF NEURAL TUBE DEFECT
     Dosage: 0.8 [mg/d ]/ preconception begin; unknown if intake beyond week 12.
     Route: 064
  3. QUILONUM RETARD [Suspect]
     Indication: BIPOLAR DISORDER
     Dosage: 450 [mg/d (225-0-225) ]
     Route: 064
     Dates: start: 20091111, end: 20100819
  4. EUTHYROX [Concomitant]
     Indication: HYPOTHYROIDISM
     Route: 064
     Dates: start: 20091111, end: 20100819
  5. PUREGON [Concomitant]
     Indication: INFERTILITY FEMALE
     Route: 064
     Dates: start: 20091111, end: 20091122
  6. OVITRELLE [Concomitant]
     Indication: INFERTILITY FEMALE
     Route: 064
     Dates: start: 20091123, end: 20091123
  7. UTROGEST [Concomitant]
     Indication: ABORTION THREATENED
     Route: 064
     Dates: start: 20091125
  8. CLEXANE [Concomitant]
     Indication: THROMBOSIS PROPHYLAXIS
     Route: 064
     Dates: start: 20091125, end: 20100131
  9. KADEFUNGIN [Concomitant]
     Indication: VULVOVAGINAL MYCOTIC INFECTION
     Route: 064
  10. CYTOTEC [Concomitant]
     Indication: LABOUR INDUCTION
     Route: 064
     Dates: start: 20100818, end: 20100818

REACTIONS (3)
  - Thrombocytopenia neonatal [Recovered/Resolved]
  - Small for dates baby [Recovered/Resolved]
  - Hypothyroidism [Recovered/Resolved]
